FAERS Safety Report 18354063 (Version 1)
Quarter: 2020Q4

REPORT INFORMATION
  Report Type: Spontaneous
  Country: US (occurrence: US)
  Receive Date: 20201006
  Receipt Date: 20201006
  Transmission Date: 20210114
  Serious: Yes (Death)
  Sender: FDA-Public Use
  Company Number: None

PATIENT
  Age: 52 Year
  Sex: Male
  Weight: 79.6 kg

DRUGS (15)
  1. REMDESIVIR. [Suspect]
     Active Substance: REMDESIVIR
     Indication: COVID-19 PNEUMONIA
     Route: 042
     Dates: start: 20200618, end: 20200623
  2. AZITHROMYCIN 500MG IV DAILY [Concomitant]
     Dates: start: 20200612, end: 20200613
  3. FAMOTIDINE 20MG IV Q12HR X11 DAYS THEN 20MG IV DAILY [Concomitant]
     Dates: start: 20200611, end: 20200704
  4. MEROPENEM 0.5GM IV Q8HR [Concomitant]
     Dates: start: 20200623, end: 20200704
  5. VANCOMYCIN IV PER PROTOCOL [Concomitant]
     Dates: start: 20200619, end: 20200625
  6. DAPTOMYCIN 500MG IV DAILY X2 DAYS THEN 500MG IV Q48H [Concomitant]
     Dates: start: 20200622, end: 20200703
  7. DEXAMETHASONE 10MG DAILY IV [Concomitant]
     Dates: start: 20200612, end: 20200704
  8. CONVALESCENT PLASMA [Concomitant]
     Active Substance: HUMAN PLASMA
     Dates: start: 20200612, end: 20200612
  9. FLUCONAZOLE 400MG IV Q2H X2 TIMES THEN 200MG IV DAILY [Concomitant]
     Dates: start: 20200628, end: 20200704
  10. INSULIN GLARGINE/LISPRO/REGULAR [Concomitant]
     Dates: start: 20200611, end: 20200704
  11. ZINC SULFATE 220MG PO DAILY [Concomitant]
     Dates: start: 20200612, end: 20200630
  12. CEFTRIAXONE 1GM IV ONCE [Concomitant]
     Dates: start: 20200612, end: 20200612
  13. METRONIDAZOLE 500MG IV Q8HR [Concomitant]
     Dates: start: 20200622, end: 20200704
  14. MICAFUNGIN 100MG IV DAILY [Concomitant]
     Dates: start: 20200622, end: 20200627
  15. CEFEPIME 1GM IV Q12HR X2 DAYS THEN 1GM IV Q8HR [Concomitant]
     Dates: start: 20200620, end: 20200623

REACTIONS (15)
  - Renal failure [None]
  - Polychromasia [None]
  - Procalcitonin increased [None]
  - Hypotension [None]
  - Bacteraemia [None]
  - Pulseless electrical activity [None]
  - Microcytosis [None]
  - Macrocytosis [None]
  - Cardiac arrest [None]
  - Red blood cell nucleated morphology [None]
  - Haemodialysis [None]
  - Platelet morphology abnormal [None]
  - Respiratory failure [None]
  - Hyperglycaemia [None]
  - Anisocytosis [None]

NARRATIVE: CASE EVENT DATE: 20200704
